FAERS Safety Report 19985032 (Version 1)
Quarter: 2021Q4

REPORT INFORMATION
  Report Type: Spontaneous
  Country: US (occurrence: US)
  Receive Date: 20211021
  Receipt Date: 20211021
  Transmission Date: 20220303
  Serious: No
  Sender: FDA-Public Use
  Company Number: US-ZOGENIX INTERNATIONAL LIMITED, A WHOLLY OWNED SUBSIDIARY OF ZOGENIX, INC.-2021ZX000409

PATIENT
  Age: 12 Year
  Sex: Male

DRUGS (11)
  1. FINTEPLA [Suspect]
     Active Substance: FENFLURAMINE
     Indication: Severe myoclonic epilepsy of infancy
     Route: 048
     Dates: start: 20210331
  2. DEPAKOTE [Concomitant]
     Active Substance: DIVALPROEX SODIUM
     Indication: Seizure
     Route: 048
     Dates: start: 20190330, end: 20210422
  3. DEPAKOTE [Concomitant]
     Active Substance: DIVALPROEX SODIUM
     Dosage: 125 MG QAM, 250 MG QPM (DEPAKOTE ER FORM)
     Route: 048
     Dates: start: 20210422
  4. EPIDIOLEX [Concomitant]
     Active Substance: CANNABIDIOL
     Indication: Seizure
     Route: 048
     Dates: start: 20190330
  5. LEVOCARNITINE [Concomitant]
     Active Substance: LEVOCARNITINE
     Indication: Product used for unknown indication
     Route: 048
     Dates: start: 20190330
  6. GUANFACINE [Concomitant]
     Active Substance: GUANFACINE
     Indication: Attention deficit hyperactivity disorder
     Route: 048
     Dates: start: 20190330
  7. POTASSIUM CITRATE [Concomitant]
     Active Substance: POTASSIUM CITRATE
     Indication: Hypokalaemia
     Route: 065
     Dates: start: 20190330
  8. QUILLIVANT XR [Concomitant]
     Active Substance: METHYLPHENIDATE HYDROCHLORIDE
     Indication: Attention deficit hyperactivity disorder
     Route: 048
     Dates: start: 20190330
  9. Vitamin D3 Adult Gummies [Concomitant]
     Indication: Hypovitaminosis
     Route: 048
  10. ZONEGRAN [Concomitant]
     Active Substance: ZONISAMIDE
     Indication: Seizure
     Dosage: 75 OR 100 MG AT NIGHT
     Route: 065
     Dates: start: 20190330, end: 20210409
  11. ZONEGRAN [Concomitant]
     Active Substance: ZONISAMIDE
     Route: 065
     Dates: start: 20210505

REACTIONS (1)
  - Nephrolithiasis [Unknown]
